FAERS Safety Report 9085873 (Version 1)
Quarter: 2013Q1

REPORT INFORMATION
  Report Type: Spontaneous
  Country: US (occurrence: US)
  Receive Date: 20130201
  Receipt Date: 20130201
  Transmission Date: 20140127
  Serious: No
  Sender: FDA-Public Use
  Company Number: US-PFIZER INC-2013041236

PATIENT
  Sex: Female

DRUGS (2)
  1. XANAX [Suspect]
     Dosage: 0.125 MG, UNK
  2. ALPRAZOLAM [Suspect]
     Dosage: 0.125 MG, UNK

REACTIONS (2)
  - Feeling abnormal [Recovered/Resolved]
  - Feeling abnormal [Unknown]
